FAERS Safety Report 15225815 (Version 1)
Quarter: 2018Q3

REPORT INFORMATION
  Report Type: Spontaneous
  Country: US (occurrence: US)
  Receive Date: 20180801
  Receipt Date: 20180801
  Transmission Date: 20181010
  Serious: No
  Sender: FDA-Public Use
  Company Number: US-PFIZER INC-2018307425

PATIENT
  Age: 38 Year
  Sex: Female

DRUGS (1)
  1. METHOTREXATE SODIUM. [Suspect]
     Active Substance: METHOTREXATE SODIUM
     Dosage: 0.8 ML, WEEKLY (0.8 CC)
     Route: 058

REACTIONS (4)
  - Liver function test increased [Unknown]
  - Arthralgia [Not Recovered/Not Resolved]
  - Tendon pain [Unknown]
  - Drug effect incomplete [Unknown]
